FAERS Safety Report 5163370-5 (Version None)
Quarter: 2006Q4

REPORT INFORMATION
  Report Type: 
  Country: None (occurrence: None)
  Receive Date: 20061124
  Receipt Date: 20061109
  Transmission Date: 20070319
  Serious: Yes (Hospitalization, Other)
  Sender: FDA-Public Use
  Company Number: 2006138201

PATIENT
  Sex: Male

DRUGS (2)
  1. DILANTIN [Suspect]
  2. KEPPRA [Concomitant]

REACTIONS (3)
  - DEHYDRATION [None]
  - GASTROENTERITIS VIRAL [None]
  - GRAND MAL CONVULSION [None]
